FAERS Safety Report 8835278 (Version 4)
Quarter: 2012Q4

REPORT INFORMATION
  Report Type: 
  Country: US (occurrence: US)
  Receive Date: 20121011
  Receipt Date: 20121129
  Transmission Date: 20130627
  Serious: Yes (Hospitalization, Other)
  Sender: FDA-Public Use
  Company Number: US-ALEXION-A201201900

PATIENT
  Age: 74 Year
  Sex: Male
  Weight: 81.6 kg

DRUGS (9)
  1. SOLIRIS 300MG [Suspect]
     Indication: PAROXYSMAL NOCTURNAL HAEMOGLOBINURIA
     Dosage: 900 mg, q2w
     Route: 042
     Dates: start: 200909
  2. SOLIRIS 300MG [Suspect]
     Dosage: 900 mg, q2w
     Route: 042
  3. ARANESP [Concomitant]
     Indication: MYELODYSPLASTIC SYNDROME
     Dosage: 200 ?g, q2w
     Route: 058
  4. VITAMIN B12 [Concomitant]
     Dosage: 1000 ?g, q month
     Route: 030
  5. FOLIC ACID [Concomitant]
     Dosage: 1 mg, qd
     Route: 048
  6. CALCITROL [Concomitant]
     Dosage: 0.25 ?g, bid
     Route: 048
  7. PRAVASTATIN [Concomitant]
     Dosage: UNK
     Route: 048
  8. CYCLOSPORINE [Concomitant]
     Dosage: 50 mg, qd
     Route: 048
  9. OMEPRAZOLE [Concomitant]
     Dosage: 20 mg, qd
     Route: 048

REACTIONS (4)
  - Colon cancer metastatic [Unknown]
  - Pulmonary embolism [Unknown]
  - Anaemia [Unknown]
  - Pneumonia [Unknown]
